FAERS Safety Report 12911125 (Version 2)
Quarter: 2017Q3

REPORT INFORMATION
  Report Type: Spontaneous
  Country: US (occurrence: US)
  Receive Date: 20161104
  Receipt Date: 20170817
  Transmission Date: 20171127
  Serious: No
  Sender: FDA-Public Use
  Company Number: US-PFIZER INC-2016511091

PATIENT
  Age: 50 Year
  Sex: Female

DRUGS (5)
  1. NORTHERA [Suspect]
     Active Substance: DROXIDOPA
     Dosage: 300 MG, 3X/DAY
  2. NORTHERA [Suspect]
     Active Substance: DROXIDOPA
     Dosage: 600 MG, 3X/DAY (600 MG TID)
     Dates: start: 201610
  3. NORTHERA [Suspect]
     Active Substance: DROXIDOPA
     Dosage: 900 MG, DAILY
  4. NORTHERA [Suspect]
     Active Substance: DROXIDOPA
     Dosage: 600 MG, 3X/DAY (300 MG, 2 CAPSULES THREE TIMES DAILY)
  5. LYRICA [Suspect]
     Active Substance: PREGABALIN
     Dosage: UNK

REACTIONS (7)
  - Off label use [Unknown]
  - Hypotension [Unknown]
  - Fluid retention [Unknown]
  - Depression [Unknown]
  - Weight increased [Recovered/Resolved]
  - Fatigue [Unknown]
  - Dizziness [Unknown]

NARRATIVE: CASE EVENT DATE: 201610
